FAERS Safety Report 6714130-2 (Version None)
Quarter: 2010Q2

REPORT INFORMATION
  Report Type: 
  Country: None (occurrence: None)
  Receive Date: 20100506
  Receipt Date: 20100426
  Transmission Date: 20101027
  Serious: No
  Sender: FDA-Public Use
  Company Number: JP-PFIZER INC-2010050076

PATIENT
  Age: 80 Year
  Sex: Male

DRUGS (2)
  1. EPLERENONE [Suspect]
     Dosage: 50 MG, DAILY
     Route: 048
     Dates: start: 20090301, end: 20100401
  2. LASIX [Concomitant]

REACTIONS (1)
  - GYNAECOMASTIA [None]
